FAERS Safety Report 18584680 (Version 1)
Quarter: 2020Q4

REPORT INFORMATION
  Report Type: Spontaneous
  Country: FR (occurrence: FR)
  Receive Date: 20201207
  Receipt Date: 20201207
  Transmission Date: 20210114
  Serious: Yes (Hospitalization)
  Sender: FDA-Public Use
  Company Number: FR-SUN PHARMACEUTICAL INDUSTRIES LTD-2020RR-270221

PATIENT
  Age: 58 Year
  Sex: Female

DRUGS (4)
  1. CHLORHYDRATE D^HYDROXYZINE [Interacting]
     Active Substance: HYDROXYZINE HYDROCHLORIDE
     Indication: AGITATION
     Dosage: 30 MILLIGRAM, DAILY
     Route: 048
     Dates: start: 20201022, end: 20201024
  2. AKINETON [Interacting]
     Active Substance: BIPERIDEN HYDROCHLORIDE
     Indication: MENTAL DISORDER
     Dosage: 8 MILLIGRAM, DAILY
     Route: 048
     Dates: start: 20201018, end: 20201024
  3. PAROXETINE. [Suspect]
     Active Substance: PAROXETINE
     Indication: MENTAL DISORDER
     Dosage: 40 MILLIGRAM, DAILY
     Route: 048
     Dates: start: 20201018, end: 20201024
  4. SULFARLEM [Interacting]
     Active Substance: ANETHOLTRITHION
     Indication: DRUG TOXICITY PROPHYLAXIS
     Dosage: 4 DOSAGE FORM, DAILY
     Route: 048
     Dates: start: 20201018, end: 20201024

REACTIONS (2)
  - Catatonia [Recovered/Resolved]
  - Hypertonia [Recovered/Resolved]

NARRATIVE: CASE EVENT DATE: 20201024
